FAERS Safety Report 25663970 (Version 1)
Quarter: 2025Q3

REPORT INFORMATION
  Report Type: Spontaneous
  Country: CA (occurrence: CA)
  Receive Date: 20250811
  Receipt Date: 20250811
  Transmission Date: 20251021
  Serious: Yes (Death, Other)
  Sender: DR REDDYS
  Company Number: None

PATIENT
  Age: 70 Year
  Sex: Male

DRUGS (13)
  1. AZACITIDINE [Suspect]
     Active Substance: AZACITIDINE
     Indication: Acute myeloid leukaemia
  2. AZACITIDINE [Suspect]
     Active Substance: AZACITIDINE
  3. AZACITIDINE [Suspect]
     Active Substance: AZACITIDINE
  4. AZACITIDINE [Suspect]
     Active Substance: AZACITIDINE
  5. AZACITIDINE [Suspect]
     Active Substance: AZACITIDINE
  6. AZACITIDINE [Suspect]
     Active Substance: AZACITIDINE
  7. VENETOCLAX [Suspect]
     Active Substance: VENETOCLAX
     Indication: Acute myeloid leukaemia
     Route: 048
  8. VENETOCLAX [Suspect]
     Active Substance: VENETOCLAX
     Route: 048
  9. VENETOCLAX [Suspect]
     Active Substance: VENETOCLAX
     Route: 048
  10. VENETOCLAX [Suspect]
     Active Substance: VENETOCLAX
     Route: 048
  11. VENETOCLAX [Suspect]
     Active Substance: VENETOCLAX
     Route: 048
  12. VENETOCLAX [Suspect]
     Active Substance: VENETOCLAX
     Route: 048
  13. COVID-19 VACCINE MRNA [Concomitant]
     Indication: COVID-19 prophylaxis
     Route: 030

REACTIONS (1)
  - Sepsis [Fatal]
